FAERS Safety Report 19756007 (Version 2)
Quarter: 2021Q4

REPORT INFORMATION
  Report Type: Spontaneous
  Country: US (occurrence: US)
  Receive Date: 20210827
  Receipt Date: 20211214
  Transmission Date: 20220304
  Serious: No
  Sender: FDA-Public Use
  Company Number: US-GLAXOSMITHKLINE-US2021AMR174315

PATIENT
  Sex: Female

DRUGS (2)
  1. ZEJULA [Suspect]
     Active Substance: NIRAPARIB
     Indication: Ovarian cancer
     Dosage: 300 MG, QD PM WITH / WITHOUT FOOD
     Route: 048
     Dates: start: 20200916
  2. ZEJULA [Suspect]
     Active Substance: NIRAPARIB
     Dosage: 300 MG, QD
     Route: 048
     Dates: start: 20201117

REACTIONS (3)
  - Abdominal discomfort [Unknown]
  - Insomnia [Unknown]
  - Carbohydrate antigen 125 increased [Not Recovered/Not Resolved]
